FAERS Safety Report 4270837-0 (Version None)
Quarter: 2004Q1

REPORT INFORMATION
  Report Type: 
  Country: None (occurrence: None)
  Receive Date: 20040113
  Receipt Date: 20040102
  Transmission Date: 20041129
  Serious: Yes (Hospitalization)
  Sender: FDA-Public Use
  Company Number: 2003190809US

PATIENT
  Age: 60 Year
  Sex: Male
  Weight: 72.7 kg

DRUGS (13)
  1. CAMPTOSAR [Suspect]
     Indication: OESOPHAGEAL ADENOCARCINOMA
     Dosage: 55 MG/M2, CYCLIC, IV
     Route: 042
     Dates: start: 20031124, end: 20031201
  2. FLUOROURACIL [Suspect]
     Indication: OESOPHAGEAL ADENOCARCINOMA
     Dosage: 2000 MG/M2, CYCLIC, IV
     Route: 042
     Dates: start: 20031124, end: 20031205
  3. TAXOTERE [Suspect]
     Indication: OESOPHAGEAL ADENOCARCINOMA
     Dosage: 33 MG/M2, CYCLIC, IV
     Route: 042
     Dates: start: 20031124, end: 20031201
  4. RADIOTHERAPY (RADIOTHERAPY) [Suspect]
     Indication: OESOPHAGEAL CARCINOMA
     Dosage: 50.4 GY
     Dates: start: 20031124, end: 20040102
  5. ZOFRAN [Concomitant]
  6. COMPAZINE [Concomitant]
  7. IMODIUM [Concomitant]
  8. LORTAB [Concomitant]
  9. GLUCOPHAGE [Concomitant]
  10. ZOCOR [Concomitant]
  11. AMBIEN [Concomitant]
  12. AEROBID [Concomitant]
  13. SEREVENT [Concomitant]

REACTIONS (5)
  - DEHYDRATION [None]
  - DIARRHOEA [None]
  - HYPOTENSION [None]
  - NAUSEA [None]
  - VOMITING [None]
